FAERS Safety Report 11316494 (Version 1)
Quarter: 2015Q3

REPORT INFORMATION
  Report Type: Spontaneous
  Country: US (occurrence: US)
  Receive Date: 20150728
  Receipt Date: 20150728
  Transmission Date: 20151125
  Serious: Yes (Death)
  Sender: FDA-Public Use
  Company Number: US-BEH-2015052767

PATIENT
  Age: 3 Month
  Sex: Female

DRUGS (1)
  1. IVIG [Suspect]
     Active Substance: HUMAN IMMUNOGLOBULIN G
     Indication: KAWASAKI^S DISEASE
     Dosage: TWICE OVER 24 HOURS, WITH A CUMULATIVE DOSE OF 4 G/KG
     Route: 042

REACTIONS (13)
  - Extravascular haemolysis [Unknown]
  - Multi-organ failure [Fatal]
  - Hyperbilirubinaemia [Unknown]
  - Haemolytic anaemia [Fatal]
  - Reticulocytosis [Unknown]
  - Red blood cell spherocytes present [Unknown]
  - Erythrophagocytosis [Unknown]
  - Histiocytosis haematophagic [Unknown]
  - Thrombocytosis [Unknown]
  - Coagulopathy [Unknown]
  - Haemoglobin decreased [Unknown]
  - Hyperferritinaemia [Unknown]
  - Anaemia [Unknown]
